APPROVED DRUG PRODUCT: DEXTROAMP SACCHARATE, AMP ASPARTATE, DEXTROAMP SULFATE AND AMP SULFATE
Active Ingredient: AMPHETAMINE ASPARTATE; AMPHETAMINE SULFATE; DEXTROAMPHETAMINE SACCHARATE; DEXTROAMPHETAMINE SULFATE
Strength: 6.25MG;6.25MG;6.25MG;6.25MG
Dosage Form/Route: CAPSULE, EXTENDED RELEASE;ORAL
Application: A212037 | Product #005 | TE Code: AB1
Applicant: ELITE LABORATORIES INC
Approved: Dec 11, 2019 | RLD: No | RS: No | Type: RX